FAERS Safety Report 5200303-7 (Version None)
Quarter: 2006Q4

REPORT INFORMATION
  Report Type: 
  Country: None (occurrence: None)
  Receive Date: 20061016
  Receipt Date: 20060814
  Transmission Date: 20070319
  Serious: No
  Sender: FDA-Public Use
  Company Number: 2006SP002999

PATIENT
  Age: 32 Year
  Sex: Female
  Weight: 77.1115 kg

DRUGS (16)
  1. LUNESTA [Suspect]
     Indication: INSOMNIA
     Dosage: SEE IMAGE
     Route: 048
     Dates: start: 20060701, end: 20060701
  2. LUNESTA [Suspect]
     Indication: INSOMNIA
     Dosage: SEE IMAGE
     Route: 048
     Dates: start: 20060701
  3. OXCARBAZEPINE [Concomitant]
  4. HYDROCODONE [Concomitant]
  5. EFFEXOR [Concomitant]
  6. LAMOTRIGINE [Concomitant]
  7. TIZANIDINE HCL [Concomitant]
  8. REQUIP [Concomitant]
  9. KLONOPIN [Concomitant]
  10. SEROQUEL [Concomitant]
  11. RIZATRIPTAN BENZOATE [Concomitant]
  12. GABAPENTIN [Concomitant]
  13. ULTRAM [Concomitant]
  14. DIPHENHYDRAMINE HCL [Concomitant]
  15. CLARITIN [Concomitant]
  16. SUDAFED 12 HOUR [Concomitant]

REACTIONS (2)
  - DRUG INEFFECTIVE [None]
  - INITIAL INSOMNIA [None]
